FAERS Safety Report 14339924 (Version 1)
Quarter: 2017Q4

REPORT INFORMATION
  Report Type: Spontaneous
  Country: CH (occurrence: CH)
  Receive Date: 20171231
  Receipt Date: 20171231
  Transmission Date: 20180321
  Serious: Yes (Hospitalization)
  Sender: FDA-Public Use
  Company Number: CH-TEVA-2017-CH-839291

PATIENT
  Age: 70 Year
  Sex: Male

DRUGS (5)
  1. SERETIDE [Concomitant]
     Active Substance: FLUTICASONE PROPIONATE\SALMETEROL XINAFOATE
     Indication: ASTHMA
     Route: 055
  2. MORPHINE [Suspect]
     Active Substance: MORPHINE
     Route: 048
     Dates: end: 20171127
  3. CAPTOPRIL-MEPHA 12,5 TABLETTEN [Suspect]
     Active Substance: CAPTOPRIL
     Indication: BLOOD PRESSURE INCREASED
     Route: 048
  4. PRAVASTATIN. [Concomitant]
     Active Substance: PRAVASTATIN
     Indication: HYPERCHLORAEMIA
     Route: 048
  5. ASPIRIN CARDIO 100 FILMTABLETTEN [Concomitant]
     Active Substance: ASPIRIN
     Route: 048

REACTIONS (9)
  - Asthenia [Recovered/Resolved]
  - Tinnitus [Recovered/Resolved]
  - Confusional state [None]
  - Overdose [Recovered/Resolved]
  - General physical health deterioration [Recovered/Resolved]
  - Blood pressure decreased [Recovered/Resolved]
  - Palpitations [Recovered/Resolved]
  - Photophobia [Recovered/Resolved]
  - Extra dose administered [None]

NARRATIVE: CASE EVENT DATE: 20171123
